FAERS Safety Report 5427151-7 (Version None)
Quarter: 2007Q3

REPORT INFORMATION
  Report Type: 
  Country: None (occurrence: None)
  Receive Date: 20070828
  Receipt Date: 20070820
  Transmission Date: 20080115
  Serious: Yes (Hospitalization, Other)
  Sender: FDA-Public Use
  Company Number: PHEH2007US07880

PATIENT
  Age: 63 Year
  Weight: 84.353 kg

DRUGS (9)
  1. ZELNORM [Suspect]
     Indication: IRRITABLE BOWEL SYNDROME
     Dosage: 3MG BID
     Dates: start: 20030626, end: 20070301
  2. TRICOR [Concomitant]
  3. PROTONIX [Concomitant]
  4. LASIX [Concomitant]
  5. COREG [Concomitant]
  6. UNIVASC [Concomitant]
  7. ZETIA [Concomitant]
  8. NOVOLOG [Concomitant]
  9. ASPIRIN [Concomitant]

REACTIONS (3)
  - FATIGUE [None]
  - VASCULAR GRAFT [None]
  - VASCULAR OCCLUSION [None]
